FAERS Safety Report 4405446-3 (Version None)
Quarter: 2004Q3

REPORT INFORMATION
  Report Type: 
  Country: None (occurrence: None)
  Receive Date: 20040723
  Receipt Date: 20030827
  Transmission Date: 20050211
  Serious: No
  Sender: FDA-Public Use
  Company Number: US-GLAXOSMITHKLINE-A0423679A

PATIENT
  Age: 30 Year
  Sex: Male

DRUGS (3)
  1. AVANDIA [Suspect]
     Dosage: 4MG TWICE PER DAY
     Route: 048
     Dates: start: 20020101
  2. GLUCOMIN [Concomitant]
     Dosage: 850MG TWICE PER DAY
     Route: 048
  3. VASOPRIL [Concomitant]
     Indication: BLOOD PRESSURE

REACTIONS (1)
  - SPERM COUNT DECREASED [None]
